FAERS Safety Report 6130170-9 (Version None)
Quarter: 2009Q1

REPORT INFORMATION
  Report Type: 
  Country: None (occurrence: None)
  Receive Date: 20090324
  Receipt Date: 20090316
  Transmission Date: 20090719
  Serious: Yes (Other)
  Sender: FDA-Public Use
  Company Number: JP-ABBOTT-08P-087-0457729-00

PATIENT
  Sex: Female

DRUGS (1)
  1. LEUPLIN FOR INJECTION 1.88 MG [Suspect]
     Indication: UTERINE LEIOMYOMA
     Route: 058
     Dates: start: 20080526

REACTIONS (4)
  - CHEST DISCOMFORT [None]
  - DYSPNOEA [None]
  - HEPATIC FUNCTION ABNORMAL [None]
  - HYPERTHYROIDISM [None]
